FAERS Safety Report 16273735 (Version 1)
Quarter: 2019Q2

REPORT INFORMATION
  Report Type: Spontaneous
  Country: US (occurrence: US)
  Receive Date: 20190503
  Receipt Date: 20190503
  Transmission Date: 20190711
  Serious: No
  Sender: FDA-Public Use
  Company Number: US-RADIUS HEALTH INC.-2019US000829

PATIENT
  Age: 53 Year
  Sex: Female

DRUGS (1)
  1. TYMLOS [Suspect]
     Active Substance: ABALOPARATIDE
     Indication: OSTEOPOROSIS POSTMENOPAUSAL
     Dosage: HALF A DOSE, EVERY OTHER DAY
     Route: 058
     Dates: start: 20180925

REACTIONS (5)
  - Product dose omission [Recovered/Resolved]
  - Hot flush [Unknown]
  - Tinnitus [Unknown]
  - Palpitations [Unknown]
  - Ear congestion [Unknown]

NARRATIVE: CASE EVENT DATE: 201901
